FAERS Safety Report 8871038 (Version 1)
Quarter: 2012Q4

REPORT INFORMATION
  Report Type: 
  Country: US (occurrence: US)
  Receive Date: 20121026
  Receipt Date: 20121026
  Transmission Date: 20130627
  Serious: No
  Sender: FDA-Public Use
  Company Number: US-AMGEN-USASP2012044239

PATIENT
  Age: 45 Year
  Sex: Male
  Weight: 180 kg

DRUGS (7)
  1. ENBREL [Suspect]
     Indication: PRODUCT USED FOR UNKNOWN INDICATION
     Dosage: 50 mg, qwk
     Route: 058
  2. INDOMETHACIN                       /00003801/ [Concomitant]
     Dosage: 75 mg, UNK
  3. FOLIC ACID [Concomitant]
     Dosage: UNK
  4. PRAVASTATIN [Concomitant]
     Dosage: 10 mg, UNK
  5. AMBIEN [Concomitant]
     Dosage: 5 mg, UNK
  6. NIACIN [Concomitant]
     Dosage: 125 mg, UNK
  7. FISH OIL [Concomitant]

REACTIONS (2)
  - Malaise [Unknown]
  - Flushing [Unknown]
